FAERS Safety Report 10729632 (Version 2)
Quarter: 2015Q1

REPORT INFORMATION
  Report Type: Report from Study
  Country: FR (occurrence: FR)
  Receive Date: 20150122
  Receipt Date: 20150127
  Transmission Date: 20150721
  Serious: Yes (Hospitalization, Other)
  Sender: FDA-Public Use
  Company Number: FR-CELGENE-056-21880-11011015

PATIENT
  Age: 64 Year
  Sex: Male

DRUGS (3)
  1. PREVISCAN [Concomitant]
     Active Substance: FLUINDIONE
     Indication: THROMBOSIS PROPHYLAXIS
     Route: 065
     Dates: start: 201007
  2. REVLIMID [Suspect]
     Active Substance: LENALIDOMIDE
     Route: 048
     Dates: start: 20070615
  3. REVLIMID [Suspect]
     Active Substance: LENALIDOMIDE
     Indication: PLASMA CELL MYELOMA
     Route: 048
     Dates: start: 20080606, end: 20101013

REACTIONS (1)
  - Hodgkin^s disease [Recovering/Resolving]

NARRATIVE: CASE EVENT DATE: 20101129
